FAERS Safety Report 9017285 (Version 2)
Quarter: 2013Q1

REPORT INFORMATION
  Report Type: Spontaneous
  Country: US (occurrence: US)
  Receive Date: 20130117
  Receipt Date: 20130222
  Transmission Date: 20140127
  Serious: No
  Sender: FDA-Public Use
  Company Number: US-PFIZER INC-2013016689

PATIENT
  Age: 58 Year
  Sex: Female
  Weight: 53 kg

DRUGS (5)
  1. PHENELZINE SULFATE [Suspect]
     Indication: DEPRESSION
     Dosage: 15 MG, 2X/DAY
     Route: 048
     Dates: start: 20121016, end: 2012
  2. PHENELZINE SULFATE [Suspect]
     Dosage: 15 MG, 3X/DAY
     Route: 048
     Dates: start: 2012, end: 2012
  3. PHENELZINE SULFATE [Suspect]
     Dosage: 15 MG, 4X/DAY
     Route: 048
     Dates: start: 2012, end: 201301
  4. PHENELZINE SULFATE [Suspect]
     Dosage: 15 MG, 3X/DAY
     Route: 048
     Dates: start: 201301
  5. SYNTHROID [Concomitant]
     Indication: HYPOTHYROIDISM
     Dosage: UNK

REACTIONS (3)
  - Product odour abnormal [Unknown]
  - Poor quality drug administered [Unknown]
  - Local swelling [Unknown]
